FAERS Safety Report 17633508 (Version 2)
Quarter: 2020Q2

REPORT INFORMATION
  Report Type: Spontaneous
  Country: IT (occurrence: IT)
  Receive Date: 20200406
  Receipt Date: 20200413
  Transmission Date: 20200713
  Serious: Yes (Other)
  Sender: FDA-Public Use
  Company Number: IT-BAUSCH-BL-2020-010307

PATIENT
  Age: 78 Year
  Sex: Female

DRUGS (4)
  1. FLUOROURACIL. [Suspect]
     Active Substance: FLUOROURACIL
     Indication: ADENOCARCINOMA GASTRIC
     Dosage: FREQUENCY: QCY
     Route: 065
     Dates: start: 201504, end: 201509
  2. FOLINIC ACID [Suspect]
     Active Substance: LEUCOVORIN
     Indication: ADENOCARCINOMA GASTRIC
     Dosage: FREQUENCY: QCY
     Route: 065
     Dates: start: 201504, end: 201509
  3. OXALIPLATIN. [Suspect]
     Active Substance: OXALIPLATIN
     Indication: ADENOCARCINOMA GASTRIC
     Dosage: FREQUENCY: QCY
     Route: 065
     Dates: start: 201504, end: 201509
  4. CAPECITABINE. [Suspect]
     Active Substance: CAPECITABINE
     Indication: ADENOCARCINOMA GASTRIC
     Dosage: FREQUENCY: QCY
     Route: 065
     Dates: start: 201509, end: 201512

REACTIONS (3)
  - Gastrointestinal toxicity [Recovering/Resolving]
  - Condition aggravated [Recovering/Resolving]
  - Skin toxicity [Recovering/Resolving]

NARRATIVE: CASE EVENT DATE: 2015
